FAERS Safety Report 6479602-7 (Version None)
Quarter: 2009Q4

REPORT INFORMATION
  Report Type: 
  Country: None (occurrence: None)
  Receive Date: 20091208
  Receipt Date: 20091204
  Transmission Date: 20100525
  Serious: Yes (Death, Hospitalization)
  Sender: FDA-Public Use
  Company Number: FR-JNJFOC-20091201678

PATIENT
  Age: 78 Year
  Sex: Male

DRUGS (16)
  1. TAVANIC [Suspect]
     Route: 048
     Dates: start: 20091013, end: 20091019
  2. TAVANIC [Suspect]
     Indication: STAPHYLOCOCCAL INFECTION
     Route: 048
     Dates: start: 20091013, end: 20091019
  3. TAVANIC [Suspect]
     Route: 042
     Dates: start: 20091020, end: 20091022
  4. ORBENIN CAP [Suspect]
     Indication: DRUG USE FOR UNKNOWN INDICATION
     Route: 065
     Dates: start: 20091013, end: 20091017
  5. RIFAMPICIN [Suspect]
     Indication: DRUG USE FOR UNKNOWN INDICATION
     Route: 065
     Dates: start: 20091017
  6. VANCOMYCIN [Suspect]
     Indication: DRUG USE FOR UNKNOWN INDICATION
     Route: 065
     Dates: start: 20091022, end: 20091024
  7. PREVISCAN (FLUINDIONE) [Suspect]
     Indication: DRUG USE FOR UNKNOWN INDICATION
     Route: 065
  8. EFFERALGAN CODEINE [Concomitant]
     Route: 065
  9. NORSET [Concomitant]
     Route: 065
  10. IKOREL [Concomitant]
     Route: 065
  11. APROVEL [Concomitant]
     Route: 065
  12. REMINYL [Concomitant]
     Route: 065
  13. SELOZOK [Concomitant]
     Route: 065
  14. TAHOR [Concomitant]
     Route: 065
  15. KARDEGIC [Concomitant]
     Route: 065
  16. TOPALGIC [Concomitant]
     Indication: MUSCULOSKELETAL PAIN
     Route: 065

REACTIONS (11)
  - AGITATION [None]
  - C-REACTIVE PROTEIN INCREASED [None]
  - CONFUSIONAL STATE [None]
  - LEUKOPENIA [None]
  - LYMPHOPENIA [None]
  - MULTI-ORGAN FAILURE [None]
  - MYOCLONUS [None]
  - NEUTROPENIA [None]
  - RENAL FAILURE ACUTE [None]
  - SOMNOLENCE [None]
  - THROMBOCYTOPENIA [None]
